FAERS Safety Report 6580775-6 (Version None)
Quarter: 2010Q1

REPORT INFORMATION
  Report Type: 
  Country: None (occurrence: None)
  Receive Date: 20100213
  Receipt Date: 20100201
  Transmission Date: 20100710
  Serious: Yes (Hospitalization, Disabling, Other)
  Sender: FDA-Public Use
  Company Number: US-ELI_LILLY_AND_COMPANY-US200909002676

PATIENT
  Sex: Male

DRUGS (16)
  1. BYETTA [Suspect]
     Indication: TYPE 2 DIABETES MELLITUS
     Dosage: 5 UG, 2/D
     Route: 058
     Dates: start: 20050101
  2. HUMULIN R [Concomitant]
     Indication: TYPE 2 DIABETES MELLITUS
     Dosage: 30 U, 2/D
     Route: 058
  3. NOVOLIN N [Concomitant]
     Indication: TYPE 2 DIABETES MELLITUS
     Dosage: 65 U, EACH MORNING
     Route: 058
  4. LANTUS [Concomitant]
     Indication: TYPE 2 DIABETES MELLITUS
     Dosage: 65 U, EACH EVENING
     Route: 058
  5. ENTERIC ASPIRIN [Concomitant]
     Dosage: UNK, DAILY (1/D)
     Route: 048
  6. TRICOR [Concomitant]
     Dosage: 48 MG, DAILY (1/D)
     Route: 048
  7. LIPITOR [Concomitant]
     Indication: BLOOD CHOLESTEROL
     Dosage: 80 MG, DAILY (1/D)
     Route: 048
  8. FUROSEMIDE [Concomitant]
     Indication: FLUID RETENTION
     Dosage: 80 MG, DAILY (1/D)
  9. GABAPENTIN [Concomitant]
     Indication: PAIN
     Dosage: 900 MG, 3/D
     Route: 048
  10. LEVOTHYROXINE SODIUM [Concomitant]
     Dosage: 50 UG, DAILY (1/D)
     Route: 048
  11. COZAAR [Concomitant]
     Indication: BLOOD PRESSURE
     Dosage: 100 MG, DAILY (1/D)
     Route: 048
  12. ATENOLOL [Concomitant]
     Indication: HYPERTENSION
     Dosage: 100 MG, DAILY (1/D)
  13. BUPROPION [Concomitant]
     Dosage: 300 MG, DAILY (1/D)
     Route: 048
  14. NEXIUM [Concomitant]
     Indication: GASTROOESOPHAGEAL REFLUX DISEASE
     Dosage: 40 MG, DAILY (1/D)
     Route: 048
  15. CYCLOBENZAPRINE [Concomitant]
     Dosage: 10 MG, AS NEEDED
     Route: 048
  16. NAPROXEN [Concomitant]

REACTIONS (17)
  - BACK PAIN [None]
  - BLOOD GLUCOSE DECREASED [None]
  - CARDIAC ENZYMES INCREASED [None]
  - CHEST PAIN [None]
  - DEPRESSION [None]
  - DYSPNOEA [None]
  - HYPOAESTHESIA [None]
  - MUSCLE SPASMS [None]
  - MYOCARDIAL INFARCTION [None]
  - NEUROPATHY PERIPHERAL [None]
  - OFF LABEL USE [None]
  - PAIN IN EXTREMITY [None]
  - POLLAKIURIA [None]
  - POOR PERIPHERAL CIRCULATION [None]
  - RENAL IMPAIRMENT [None]
  - SENSATION OF HEAVINESS [None]
  - THROMBOSIS [None]
